FAERS Safety Report 6408643-0 (Version None)
Quarter: 2009Q4

REPORT INFORMATION
  Report Type: 
  Country: None (occurrence: None)
  Receive Date: 20091021
  Receipt Date: 20091013
  Transmission Date: 20100525
  Serious: Yes (Death, Hospitalization)
  Sender: FDA-Public Use
  Company Number: US-WYE-H10653309

PATIENT
  Sex: Male

DRUGS (14)
  1. TORISEL [Suspect]
     Indication: SQUAMOUS CELL CARCINOMA
     Dosage: UNKNOWN
     Dates: start: 20090101
  2. TORISEL [Suspect]
     Indication: LARYNGEAL CANCER
  3. MORPHINE [Concomitant]
     Dosage: UNKNOWN
  4. REGLAN [Concomitant]
     Dosage: UNKNOWN
  5. ASCORBIC ACID [Concomitant]
     Dosage: UNKNOWN
  6. LEVOTHYROXINE SODIUM [Concomitant]
     Dosage: UNKNOWN
  7. AVASTIN [Suspect]
     Indication: SQUAMOUS CELL CARCINOMA
     Dosage: UNKNOWN
     Dates: start: 20090101
  8. AVASTIN [Suspect]
     Indication: LARYNGEAL CANCER
  9. AUGMENTIN [Concomitant]
     Dosage: UNKNOWN
  10. CIPRO [Concomitant]
     Dosage: UNKNOWN
  11. DOXYCYCLINE [Concomitant]
     Dosage: UNKNOWN
  12. ENSURE PLUS [Concomitant]
     Dosage: UNKNOWN
  13. METHADONE HYDROCHLORIDE [Concomitant]
     Dosage: UNKNOWN
  14. ERGOCALCIFEROL [Concomitant]
     Dosage: UNKNOWN

REACTIONS (2)
  - DISEASE PROGRESSION [None]
  - TUMOUR HAEMORRHAGE [None]
